FAERS Safety Report 8139951-3 (Version None)
Quarter: 2012Q1

REPORT INFORMATION
  Report Type: 
  Country: None (occurrence: None)
  Receive Date: 20120215
  Receipt Date: 20120206
  Transmission Date: 20120608
  Serious: Yes (Hospitalization, Other)
  Sender: FDA-Public Use
  Company Number: US-ROCHE-784155

PATIENT
  Sex: Male
  Weight: 83.082 kg

DRUGS (6)
  1. ACCUTANE [Suspect]
     Route: 065
     Dates: start: 20001001, end: 20010315
  2. WELLBUTRIN [Concomitant]
  3. ZOLOFT [Concomitant]
  4. ACETAMINOPHEN [Concomitant]
  5. ACCUTANE [Suspect]
     Indication: ACNE
     Route: 065
     Dates: start: 19990915, end: 20000501
  6. PAXIL [Concomitant]

REACTIONS (7)
  - COLITIS ULCERATIVE [None]
  - INFLAMMATORY BOWEL DISEASE [None]
  - BLOOD TRIGLYCERIDES INCREASED [None]
  - HEPATIC ENZYME INCREASED [None]
  - DEPRESSION [None]
  - IRRITABLE BOWEL SYNDROME [None]
  - OROPHARYNGEAL PAIN [None]
